FAERS Safety Report 21505815 (Version 2)
Quarter: 2022Q4

REPORT INFORMATION
  Report Type: Report from Study
  Country: US (occurrence: US)
  Receive Date: 20221026
  Receipt Date: 20221220
  Transmission Date: 20230113
  Serious: Yes (Hospitalization, Other)
  Sender: FDA-Public Use
  Company Number: US-ABBVIE-4173759

PATIENT
  Sex: Male

DRUGS (1)
  1. VENCLEXTA [Suspect]
     Active Substance: VENETOCLAX
     Indication: Mantle cell lymphoma
     Dosage: EVENT ONSET DATES FOR ALL EVENTS SHOULD BE 2022.
     Route: 048
     Dates: start: 202209, end: 202210

REACTIONS (9)
  - Neoplasm malignant [Unknown]
  - Hospice care [Unknown]
  - Paralysis [Unknown]
  - Gait inability [Not Recovered/Not Resolved]
  - Pain [Unknown]
  - Drug ineffective [Not Recovered/Not Resolved]
  - Dysstasia [Not Recovered/Not Resolved]
  - Asthenia [Unknown]
  - Constipation [Unknown]
